FAERS Safety Report 16567708 (Version 1)
Quarter: 2019Q3

REPORT INFORMATION
  Report Type: Report from Study
  Country: DE (occurrence: DE)
  Receive Date: 20190712
  Receipt Date: 20190712
  Transmission Date: 20191004
  Serious: Yes (Other)
  Sender: FDA-Public Use
  Company Number: DE-JNJFOC-20170913420

PATIENT

DRUGS (2)
  1. CAELYX [Suspect]
     Active Substance: DOXORUBICIN HYDROCHLORIDE
     Indication: GASTRIC CANCER RECURRENT
     Route: 033
  2. CISPLATIN. [Suspect]
     Active Substance: CISPLATIN
     Indication: GASTRIC CANCER RECURRENT
     Route: 033

REACTIONS (12)
  - Hepatotoxicity [Unknown]
  - Subcutaneous emphysema [Unknown]
  - Drug ineffective [Unknown]
  - Toxicity to various agents [Unknown]
  - Nausea [Unknown]
  - Product use in unapproved indication [Unknown]
  - Off label use [Unknown]
  - Incorrect route of product administration [Unknown]
  - Vomiting [Unknown]
  - Subileus [Unknown]
  - Abdominal pain [Unknown]
  - Hypoalbuminaemia [Unknown]
